FAERS Safety Report 12320332 (Version 1)
Quarter: 2016Q2

REPORT INFORMATION
  Report Type: Report from Study
  Country: CA (occurrence: CA)
  Receive Date: 20160429
  Receipt Date: 20160429
  Transmission Date: 20160815
  Serious: Yes (Hospitalization, Other)
  Sender: FDA-Public Use
  Company Number: CA-ABBVIE-16K-028-1613895-00

PATIENT
  Sex: Female

DRUGS (1)
  1. HUMIRA [Suspect]
     Active Substance: ADALIMUMAB
     Indication: CROHN^S DISEASE
     Route: 058
     Dates: start: 20150925, end: 201603

REACTIONS (6)
  - Fungal infection [Not Recovered/Not Resolved]
  - Rash [Not Recovered/Not Resolved]
  - Alopecia [Not Recovered/Not Resolved]
  - Dyspnoea [Not Recovered/Not Resolved]
  - Ileal stenosis [Unknown]
  - Intestinal obstruction [Not Recovered/Not Resolved]
